FAERS Safety Report 9188055 (Version 2)
Quarter: 2013Q2

REPORT INFORMATION
  Report Type: Spontaneous
  Country: JP (occurrence: JP)
  Receive Date: 20130325
  Receipt Date: 20130403
  Transmission Date: 20140414
  Serious: Yes (Hospitalization)
  Sender: FDA-Public Use
  Company Number: JP-GLAXOSMITHKLINE-B0863036A

PATIENT
  Age: 59 Year
  Sex: Male

DRUGS (5)
  1. PAXIL [Suspect]
     Indication: SCHIZOAFFECTIVE DISORDER DEPRESSIVE TYPE
     Dosage: 20MG PER DAY
     Route: 048
     Dates: start: 201202
  2. LAMICTAL [Suspect]
     Indication: SCHIZOAFFECTIVE DISORDER DEPRESSIVE TYPE
     Dosage: 25MG PER DAY
     Route: 048
     Dates: start: 20130115, end: 20130120
  3. ROHYPNOL [Concomitant]
     Indication: INSOMNIA
     Dosage: 2MG PER DAY
     Route: 048
     Dates: start: 201202
  4. RISPERDAL [Concomitant]
     Indication: HALLUCINATION, AUDITORY
     Route: 030
     Dates: start: 201202
  5. PREDONINE [Concomitant]
     Indication: RASH
     Route: 048
     Dates: start: 201301

REACTIONS (19)
  - Stevens-Johnson syndrome [Recovered/Resolved]
  - Rash [Unknown]
  - Ocular hyperaemia [Unknown]
  - Erythema of eyelid [Unknown]
  - Lip erosion [Unknown]
  - Oral mucosa erosion [Unknown]
  - Genital lesion [Unknown]
  - Rash macular [Unknown]
  - Pyrexia [Unknown]
  - Pyromania [Unknown]
  - Suicide attempt [Unknown]
  - Thinking abnormal [Unknown]
  - Autism [Unknown]
  - Dependent personality disorder [Unknown]
  - Listless [Unknown]
  - Disinhibition [Unknown]
  - Diabetes mellitus [Unknown]
  - Diet noncompliance [Unknown]
  - Blunted affect [Unknown]
